FAERS Safety Report 8336216-1 (Version None)
Quarter: 2012Q2

REPORT INFORMATION
  Report Type: 
  Country: None (occurrence: None)
  Receive Date: 20120504
  Receipt Date: 20120427
  Transmission Date: 20120825
  Serious: Yes (Other)
  Sender: FDA-Public Use
  Company Number: DE-UCBSA-056395

PATIENT
  Sex: Female

DRUGS (1)
  1. CIMZIA [Suspect]

REACTIONS (1)
  - ASPERGILLOMA [None]
